FAERS Safety Report 4348111-3 (Version None)
Quarter: 2004Q1

REPORT INFORMATION
  Report Type: 
  Country: None (occurrence: None)
  Receive Date: 20040325
  Receipt Date: 20040210
  Transmission Date: 20041129
  Serious: No
  Sender: FDA-Public Use
  Company Number: USA040258967

PATIENT
  Age: 68 Year
  Sex: Female
  Weight: 62 kg

DRUGS (2)
  1. FORTEO [Suspect]
     Indication: OSTEOPOROSIS
     Dosage: 20 UG/1 DAY
     Dates: start: 20040114, end: 20040202
  2. AVAPRO [Concomitant]

REACTIONS (6)
  - ASTHENIA [None]
  - FATIGUE [None]
  - NAUSEA [None]
  - PAIN IN EXTREMITY [None]
  - THINKING ABNORMAL [None]
  - TREMOR [None]
